FAERS Safety Report 6751915-0 (Version None)
Quarter: 2010Q2

REPORT INFORMATION
  Report Type: 
  Country: None (occurrence: None)
  Receive Date: 20100602
  Receipt Date: 20100524
  Transmission Date: 20101027
  Serious: Yes (Hospitalization)
  Sender: FDA-Public Use
  Company Number: US-B.I. PHARMACEUTICALS,INC./RIDGEFIELD-2010-BP-05842BP

PATIENT
  Sex: Female

DRUGS (1)
  1. MOBIC [Suspect]
     Indication: ARTHRALGIA
     Dosage: 15 MG
     Route: 048
     Dates: start: 20090901, end: 20091201

REACTIONS (4)
  - ABDOMINAL WALL DISORDER [None]
  - ANAEMIA [None]
  - GASTRIC HAEMORRHAGE [None]
  - INCISION SITE PAIN [None]
